FAERS Safety Report 13009382 (Version 1)
Quarter: 2016Q4

REPORT INFORMATION
  Report Type: Spontaneous
  Country: PT (occurrence: PT)
  Receive Date: 20161208
  Receipt Date: 20161208
  Transmission Date: 20170207
  Serious: Yes (Other)
  Sender: FDA-Public Use
  Company Number: PT-SCIEGEN PHARMACEUTICALS INC-2016SCILIT00614

PATIENT
  Age: 74 Year
  Sex: Female

DRUGS (7)
  1. ENOXAPARIN [Suspect]
     Active Substance: ENOXAPARIN
     Indication: PRODUCT USED FOR UNKNOWN INDICATION
     Dosage: UNK
     Route: 065
  2. PANTOPRAZOLE [Suspect]
     Active Substance: PANTOPRAZOLE SODIUM
     Indication: PRODUCT USED FOR UNKNOWN INDICATION
     Dosage: UNK
     Route: 065
  3. IINAGLIPTIN [Suspect]
     Active Substance: LINAGLIPTIN
     Indication: PRODUCT USED FOR UNKNOWN INDICATION
     Dosage: UNK
     Route: 065
  4. MIRTAZAPINE. [Suspect]
     Active Substance: MIRTAZAPINE
     Indication: PRODUCT USED FOR UNKNOWN INDICATION
     Dosage: UNK
     Route: 065
  5. ATORVASTATIN CALCIUM. [Suspect]
     Active Substance: ATORVASTATIN CALCIUM
     Indication: PRODUCT USED FOR UNKNOWN INDICATION
     Dosage: UNK
     Route: 065
  6. FUROSEMIDE. [Suspect]
     Active Substance: FUROSEMIDE
     Indication: PRODUCT USED FOR UNKNOWN INDICATION
     Dosage: UNK
     Route: 065
  7. CARVEDLLOL [Suspect]
     Active Substance: CARVEDILOL
     Indication: PRODUCT USED FOR UNKNOWN INDICATION
     Dosage: UNK
     Route: 065

REACTIONS (22)
  - Bicytopenia [Unknown]
  - Asthenia [Unknown]
  - Pleural effusion [Unknown]
  - Proteinuria [Unknown]
  - Quadrantanopia [Unknown]
  - Cognitive disorder [Unknown]
  - Hemianopia homonymous [Unknown]
  - Ascites [Unknown]
  - Thrombosis [Unknown]
  - Sarcopenia [Unknown]
  - Type 2 diabetes mellitus [Unknown]
  - Weight decreased [Unknown]
  - Visual acuity reduced [Unknown]
  - Raynaud^s phenomenon [Unknown]
  - Anosognosia [Unknown]
  - Diarrhoea [Unknown]
  - Decreased appetite [Unknown]
  - Dyslipidaemia [Unknown]
  - Lupus-like syndrome [Unknown]
  - Hypertension [Unknown]
  - Peptic ulcer [Unknown]
  - Oedema peripheral [Unknown]
